FAERS Safety Report 4311582-2 (Version None)
Quarter: 2004Q1

REPORT INFORMATION
  Report Type: 
  Country: None (occurrence: None)
  Receive Date: 20040302
  Receipt Date: 20040114
  Transmission Date: 20041129
  Serious: No
  Sender: FDA-Public Use
  Company Number: 200325588BWH

PATIENT
  Age: 77 Year
  Sex: Male

DRUGS (5)
  1. LEVITRA [Suspect]
     Indication: ERECTILE DYSFUNCTION
     Dosage: 10 MG QW ORAL, 10 MG QW, ORAL 10 MG QW ORAL 10 MG Q W ORAL 20 MG QW ORAL
     Route: 048
     Dates: start: 20030903
  2. LEVITRA [Suspect]
     Indication: ERECTILE DYSFUNCTION
     Dosage: 10 MG QW ORAL, 10 MG QW, ORAL 10 MG QW ORAL 10 MG Q W ORAL 20 MG QW ORAL
     Route: 048
     Dates: start: 20030910
  3. LEVITRA [Suspect]
     Indication: ERECTILE DYSFUNCTION
     Dosage: 10 MG QW ORAL, 10 MG QW, ORAL 10 MG QW ORAL 10 MG Q W ORAL 20 MG QW ORAL
     Route: 048
     Dates: start: 20030917
  4. LEVITRA [Suspect]
     Indication: ERECTILE DYSFUNCTION
     Dosage: 10 MG QW ORAL, 10 MG QW, ORAL 10 MG QW ORAL 10 MG Q W ORAL 20 MG QW ORAL
     Route: 048
     Dates: start: 20030924
  5. LEVITRA [Suspect]
     Indication: ERECTILE DYSFUNCTION
     Dosage: 10 MG QW ORAL, 10 MG QW, ORAL 10 MG QW ORAL 10 MG Q W ORAL 20 MG QW ORAL
     Route: 048
     Dates: start: 20031007

REACTIONS (1)
  - ERECTILE DYSFUNCTION [None]
